FAERS Safety Report 24208714 (Version 1)
Quarter: 2024Q3

REPORT INFORMATION
  Report Type: Report from Study
  Country: US (occurrence: US)
  Receive Date: 20240814
  Receipt Date: 20240814
  Transmission Date: 20241017
  Serious: Yes (Other)
  Sender: BAYER
  Company Number: US-BAYER-2024A115023

PATIENT

DRUGS (1)
  1. CLARITIN ALLERGY [Suspect]
     Active Substance: LORATADINE
     Indication: Multiple allergies

REACTIONS (2)
  - Choking [Unknown]
  - Drug ineffective [Unknown]
